FAERS Safety Report 20977014 (Version 1)
Quarter: 2022Q2

REPORT INFORMATION
  Report Type: Spontaneous
  Country: GB (occurrence: GB)
  Receive Date: 20220617
  Receipt Date: 20220617
  Transmission Date: 20220721
  Serious: Yes (Other)
  Sender: FDA-Public Use
  Company Number: GB-PFIZER INC-PV202200002859

PATIENT
  Age: 76 Year
  Sex: Male

DRUGS (2)
  1. GEMCITABINE HYDROCHLORIDE [Suspect]
     Active Substance: GEMCITABINE HYDROCHLORIDE
     Indication: Transitional cell carcinoma metastatic
     Dosage: UNK
  2. CARBOPLATIN [Suspect]
     Active Substance: CARBOPLATIN
     Indication: Transitional cell carcinoma metastatic
     Dosage: UNK

REACTIONS (7)
  - Urosepsis [Unknown]
  - Neuropathy peripheral [Unknown]
  - Nausea [Unknown]
  - Fatigue [Recovering/Resolving]
  - Hypertransaminasaemia [Unknown]
  - Anaemia [Unknown]
  - Skin toxicity [Recovering/Resolving]
